FAERS Safety Report 9016809 (Version 3)
Quarter: 2017Q2

REPORT INFORMATION
  Report Type: Spontaneous
  Country: DE (occurrence: DE)
  Receive Date: 20130117
  Receipt Date: 20170426
  Transmission Date: 20170830
  Serious: Yes (Death, Hospitalization)
  Sender: FDA-Public Use
  Company Number: PHHY2013DE003756

PATIENT
  Age: 86 Year
  Sex: Male
  Weight: 94 kg

DRUGS (1)
  1. GLIVEC [Suspect]
     Active Substance: IMATINIB MESYLATE
     Indication: SARCOMA
     Dosage: 400 MG, UNK
     Route: 048
     Dates: start: 20110214, end: 20120618

REACTIONS (2)
  - General physical health deterioration [Fatal]
  - Urinary incontinence [Fatal]

NARRATIVE: CASE EVENT DATE: 20120706
